FAERS Safety Report 4374870-X (Version None)
Quarter: 2004Q2

REPORT INFORMATION
  Report Type: 
  Country: None (occurrence: None)
  Receive Date: 20040602
  Receipt Date: 20031001
  Transmission Date: 20050107
  Serious: Yes (Hospitalization)
  Sender: FDA-Public Use
  Company Number: US-JNJFOC-20031005197

PATIENT
  Age: 54 Year
  Sex: Female
  Weight: 110.2241 kg

DRUGS (6)
  1. CISAPRIDE (CISAPRIDE) [Suspect]
     Indication: GASTROOESOPHAGEAL REFLUX DISEASE
     Dosage: 20 MG, 1 IN 1 DAY
     Dates: start: 19971101
  2. PRILOSEC [Concomitant]
  3. RYTHMOL [Concomitant]
  4. LORCET-HD [Suspect]
  5. ASPIRIN [Concomitant]
  6. PAXIL [Concomitant]

REACTIONS (3)
  - CHEST PAIN [None]
  - CONSTIPATION [None]
  - VENTRICULAR ARRHYTHMIA [None]
